FAERS Safety Report 4439679-7 (Version None)
Quarter: 2004Q3

REPORT INFORMATION
  Report Type: 
  Country: None (occurrence: None)
  Receive Date: 20040902
  Receipt Date: 20040823
  Transmission Date: 20050211
  Serious: Yes (Death)
  Sender: FDA-Public Use
  Company Number: 200418306GDDC

PATIENT
  Age: 51 Year
  Sex: Male
  Weight: 122 kg

DRUGS (7)
  1. CODE UNBROKEN [Suspect]
     Indication: MYOCARDIAL INFARCTION
     Dosage: DOSE: ENOX/PLACEBO BOLUS 30 MG
     Route: 040
     Dates: start: 20040820
  2. ASPIRIN [Suspect]
     Indication: MYOCARDIAL INFARCTION
     Route: 048
     Dates: start: 20040820, end: 20040820
  3. ALTEPLASE [Suspect]
     Indication: MYOCARDIAL INFARCTION
     Route: 042
     Dates: start: 20040820, end: 20040820
  4. LASIX [Suspect]
     Indication: CARDIOGENIC SHOCK
     Route: 042
     Dates: start: 20040820, end: 20040820
  5. DOPAMIN [Suspect]
     Indication: CARDIOGENIC SHOCK
     Route: 042
     Dates: start: 20040820, end: 20040820
  6. METOPROLOL [Concomitant]
     Indication: MYOCARDIAL INFARCTION
     Route: 048
     Dates: start: 20040820, end: 20040820
  7. LIDOCAIN [Concomitant]
     Indication: VENTRICULAR FIBRILLATION
     Route: 042
     Dates: start: 20040820, end: 20040820

REACTIONS (6)
  - ACUTE MYOCARDIAL INFARCTION [None]
  - ANURIA [None]
  - CARDIAC ARREST [None]
  - CARDIOGENIC SHOCK [None]
  - HYPOTENSION [None]
  - VENTRICULAR FIBRILLATION [None]
